FAERS Safety Report 22200098 (Version 5)
Quarter: 2023Q2

REPORT INFORMATION
  Report Type: Spontaneous
  Country: JP (occurrence: JP)
  Receive Date: 20230412
  Receipt Date: 20230614
  Transmission Date: 20230722
  Serious: Yes (Hospitalization, Disabling, Other)
  Sender: FDA-Public Use
  Company Number: JP-BRISTOL-MYERS SQUIBB COMPANY-2022-053476

PATIENT
  Age: 61 Year
  Sex: Male
  Weight: 67 kg

DRUGS (21)
  1. YERVOY [Suspect]
     Active Substance: IPILIMUMAB
     Indication: Pleural mesothelioma malignant
     Route: 041
     Dates: start: 20220315, end: 20220315
  2. YERVOY [Suspect]
     Active Substance: IPILIMUMAB
     Route: 041
     Dates: start: 20220426, end: 20220426
  3. YERVOY [Suspect]
     Active Substance: IPILIMUMAB
     Route: 041
     Dates: end: 20220603
  4. YERVOY [Suspect]
     Active Substance: IPILIMUMAB
     Route: 041
     Dates: start: 20220315, end: 20220603
  5. OPDIVO [Suspect]
     Active Substance: NIVOLUMAB
     Indication: Pleural mesothelioma malignant
     Route: 041
     Dates: start: 20220315, end: 20220315
  6. OPDIVO [Suspect]
     Active Substance: NIVOLUMAB
     Route: 041
     Dates: start: 20220405, end: 20220405
  7. OPDIVO [Suspect]
     Active Substance: NIVOLUMAB
     Route: 041
     Dates: start: 20220426, end: 20220426
  8. OPDIVO [Suspect]
     Active Substance: NIVOLUMAB
     Route: 041
     Dates: end: 20220603
  9. PREDNISOLONE [Suspect]
     Active Substance: PREDNISOLONE
     Indication: Polyneuropathy
     Dates: start: 20220604
  10. PREDNISOLONE [Suspect]
     Active Substance: PREDNISOLONE
     Dates: start: 20220618
  11. PREDNISOLONE [Suspect]
     Active Substance: PREDNISOLONE
  12. PREDNISOLONE [Suspect]
     Active Substance: PREDNISOLONE
  13. PREDNISOLONE [Suspect]
     Active Substance: PREDNISOLONE
     Dates: start: 20220810
  14. PREDNISOLONE [Suspect]
     Active Substance: PREDNISOLONE
     Dates: start: 20220903
  15. METHYLPREDNISOLONE [Suspect]
     Active Substance: METHYLPREDNISOLONE
     Indication: Polyneuropathy
     Dates: start: 20220601, end: 20220603
  16. METHYLPREDNISOLONE [Suspect]
     Active Substance: METHYLPREDNISOLONE
     Dates: start: 20220802, end: 20220804
  17. AMLODIPINE [Concomitant]
     Active Substance: AMLODIPINE BESYLATE
     Indication: Product used for unknown indication
     Route: 048
     Dates: start: 20210413
  18. FEBUXOSTAT [Concomitant]
     Active Substance: FEBUXOSTAT
     Indication: Product used for unknown indication
     Route: 048
     Dates: start: 20210706
  19. CLOBETASOL [Concomitant]
     Active Substance: CLOBETASOL
     Indication: Product used for unknown indication
     Route: 062
     Dates: start: 20220325
  20. NADIFLOXACIN [Concomitant]
     Active Substance: NADIFLOXACIN
     Indication: Product used for unknown indication
     Route: 062
     Dates: start: 20220325
  21. RESTAMIN [DIPHENHYDRAMINE HYDROCHLORIDE] [Concomitant]
     Indication: Product used for unknown indication
     Route: 062
     Dates: start: 20220426

REACTIONS (7)
  - Immune-mediated arthritis [Recovered/Resolved]
  - Immune-mediated hyperthyroidism [Recovered/Resolved]
  - Polyneuropathy [Not Recovered/Not Resolved]
  - Vasculitis [Not Recovered/Not Resolved]
  - Herpes zoster [Recovered/Resolved with Sequelae]
  - Eczema [Unknown]
  - Angiopathic neuropathy [Not Recovered/Not Resolved]

NARRATIVE: CASE EVENT DATE: 20220324
